FAERS Safety Report 4885021-7 (Version None)
Quarter: 2006Q1

REPORT INFORMATION
  Report Type: 
  Country: None (occurrence: None)
  Receive Date: 20060119
  Receipt Date: 20051005
  Transmission Date: 20060701
  Serious: Yes (Hospitalization, Disabling)
  Sender: FDA-Public Use
  Company Number: US-MERCK-0510USA05514

PATIENT
  Age: 52 Year
  Sex: Male
  Weight: 83 kg

DRUGS (4)
  1. VIOXX [Suspect]
     Indication: ARTHRITIS
     Route: 048
     Dates: end: 20010101
  2. VIOXX [Suspect]
     Route: 048
     Dates: start: 20010519
  3. PRINZIDE [Concomitant]
     Route: 048
  4. VIAGRA [Concomitant]
     Route: 065

REACTIONS (7)
  - ARTHRITIS [None]
  - BLOOD GLUCOSE DECREASED [None]
  - CARDIOVASCULAR DISORDER [None]
  - CARPAL TUNNEL SYNDROME [None]
  - INAPPROPRIATE SCHEDULE OF DRUG ADMINISTRATION [None]
  - MYOCARDIAL INFARCTION [None]
  - PRESCRIBED OVERDOSE [None]
